FAERS Safety Report 18572550 (Version 1)
Quarter: 2020Q4

REPORT INFORMATION
  Report Type: Spontaneous
  Country: CG (occurrence: CG)
  Receive Date: 20201202
  Receipt Date: 20201202
  Transmission Date: 20210114
  Serious: Yes (Hospitalization)
  Sender: FDA-Public Use
  Company Number: CG-PAIPHARMA-2020-CG-000002

PATIENT
  Age: 3 Year
  Sex: Male

DRUGS (1)
  1. VALPROIC ACID (NON-SPECIFIC) [Suspect]
     Active Substance: VALPROIC ACID
     Indication: INFANTILE SPASMS
     Dosage: 62 MG/KG DAILY

REACTIONS (2)
  - Haemophagocytic lymphohistiocytosis [Recovered/Resolved]
  - Overdose [Recovered/Resolved]
